FAERS Safety Report 5860667-8 (Version None)
Quarter: 2008Q3

REPORT INFORMATION
  Report Type: 
  Country: None (occurrence: None)
  Receive Date: 20080827
  Receipt Date: 20071018
  Transmission Date: 20090109
  Serious: Yes (Hospitalization)
  Sender: FDA-Public Use
  Company Number: US-ABBOTT-07P-163-0421276-00

PATIENT
  Sex: Female
  Weight: 80.812 kg

DRUGS (2)
  1. NIASPAN [Suspect]
     Indication: BLOOD CHOLESTEROL
     Route: 048
     Dates: start: 20000101, end: 20020101
  2. ATORVASTATIN CALCIUM [Suspect]
     Indication: BLOOD CHOLESTEROL
     Route: 048
     Dates: end: 20020101

REACTIONS (3)
  - ABASIA [None]
  - FLUSHING [None]
  - RHABDOMYOLYSIS [None]
